FAERS Safety Report 11939361 (Version 1)
Quarter: 2016Q1

REPORT INFORMATION
  Report Type: Spontaneous
  Country: JP (occurrence: JP)
  Receive Date: 20160122
  Receipt Date: 20160122
  Transmission Date: 20160526
  Serious: Yes (Other)
  Sender: FDA-Public Use
  Company Number: JP-PFIZER INC-2016027907

PATIENT
  Age: 26 Year
  Sex: Female

DRUGS (1)
  1. SILDENAFIL CITRATE. [Suspect]
     Active Substance: SILDENAFIL CITRATE
     Indication: PORTOPULMONARY HYPERTENSION
     Dosage: 60 MG, DAILY
     Route: 048

REACTIONS (3)
  - Fluid overload [Unknown]
  - Cyanosis [Unknown]
  - Condition aggravated [Unknown]
